FAERS Safety Report 18685177 (Version 4)
Quarter: 2024Q2

REPORT INFORMATION
  Report Type: Spontaneous
  Country: IT (occurrence: IT)
  Receive Date: 20201231
  Receipt Date: 20240424
  Transmission Date: 20240716
  Serious: Yes (Other)
  Sender: FDA-Public Use
  Company Number: IT-ALLERGAN-2048385US

PATIENT
  Age: 30 Year
  Sex: Male

DRUGS (5)
  1. ACITRETIN [Suspect]
     Active Substance: ACITRETIN
     Indication: Erythrodermic psoriasis
     Dosage: DAILY DOSE: 25.0 MG
     Route: 065
  2. ETANERCEPT [Suspect]
     Active Substance: ETANERCEPT
     Indication: Erythrodermic psoriasis
     Dosage: DAILY DOSE: 7.0 MG
     Route: 065
  3. ETANERCEPT [Suspect]
     Active Substance: ETANERCEPT
     Indication: Erythrodermic psoriasis
     Dosage: DAILY DOSE: 7.0 MG
     Route: 065
  4. PREDNISONE [Suspect]
     Active Substance: PREDNISONE
     Indication: Erythrodermic psoriasis
     Route: 048
  5. CYCLOSPORINE [Suspect]
     Active Substance: CYCLOSPORINE
     Indication: Erythrodermic psoriasis
     Dosage: DOSAGE TEXT: 150-200 MG/QD
     Route: 065

REACTIONS (4)
  - Cushing^s syndrome [Recovering/Resolving]
  - Psoriasis [Recovered/Resolved]
  - Hepatic enzyme increased [Recovering/Resolving]
  - Dyslipidaemia [Recovering/Resolving]
